FAERS Safety Report 8530383 (Version 4)
Quarter: 2012Q4

REPORT INFORMATION
  Report Type: Report from Study
  Country: GB (occurrence: GB)
  Receive Date: 20120425
  Receipt Date: 20121210
  Transmission Date: 20130627
  Serious: Yes (Hospitalization)
  Sender: FDA-Public Use
  Company Number: GB-CELGENEUS-167-C5013-12030324

PATIENT
  Age: 57 Year
  Sex: Female
  Weight: 58.5 kg

DRUGS (11)
  1. CC-5013 [Suspect]
     Indication: DIFFUSE LARGE B-CELL LYMPHOMA
     Dosage: 25 Milligram
     Route: 048
     Dates: start: 20110808
  2. CC-5013 [Suspect]
     Dosage: 25 Milligram
     Route: 048
     Dates: start: 20120110, end: 20120117
  3. CC-5013 [Suspect]
     Route: 048
     Dates: start: 20111228, end: 20120109
  4. ASPIRINE [Concomitant]
     Indication: DRUG USE FOR UNKNOWN INDICATION
     Route: 065
     Dates: start: 20120211
  5. CODEINE PHOSPHATE [Concomitant]
     Indication: ULCERATIVE COLITIS
     Dosage: 100 Milligram
     Route: 065
     Dates: start: 20120206
  6. CODEINE PHOSPHATE [Concomitant]
     Indication: COUGH
  7. SALBUTAMOL [Concomitant]
     Indication: LUNG INFECTION
     Dosage: 2 puffs
     Route: 055
     Dates: start: 20120206
  8. METHOTREXATE [Concomitant]
     Indication: RHEUMATOID ARTHRITIS
     Dosage: 20 Milligram
     Route: 048
     Dates: start: 2001, end: 20010726
  9. METHOTREXATE [Concomitant]
     Dosage: 10 Milligram
     Route: 048
     Dates: start: 20110822, end: 20120705
  10. HYDROXYCHLOROQUINE [Concomitant]
     Indication: RHEUMATOID ARTHRITIS
     Dosage: 200 Milligram
     Route: 048
     Dates: start: 2001, end: 20010726
  11. HYDROXYCHLOROQUINE [Concomitant]
     Dosage: 400 Milligram
     Route: 048
     Dates: start: 20110727, end: 20120705

REACTIONS (2)
  - Colitis ulcerative [Recovered/Resolved]
  - Lung infection [Recovered/Resolved]
